FAERS Safety Report 10990035 (Version 2)
Quarter: 2015Q2

REPORT INFORMATION
  Report Type: Spontaneous
  Country: US (occurrence: US)
  Receive Date: 20150406
  Receipt Date: 20150615
  Transmission Date: 20150821
  Serious: Yes (Hospitalization)
  Sender: FDA-Public Use
  Company Number: US-BAYER-2015-073155

PATIENT
  Sex: Male

DRUGS (1)
  1. MIRENA [Suspect]
     Active Substance: LEVONORGESTREL
     Dosage: 20 MCG/24HR, CONT
     Route: 064
     Dates: start: 201201, end: 20121016

REACTIONS (7)
  - Mentally late developer [None]
  - Emotional distress [None]
  - Developmental delay [None]
  - Developmental delay [None]
  - Pain [None]
  - Premature baby [None]
  - Injury [None]

NARRATIVE: CASE EVENT DATE: 2014
